APPROVED DRUG PRODUCT: OMNIPAQUE 350
Active Ingredient: IOHEXOL
Strength: 75.5%
Dosage Form/Route: SOLUTION;INJECTION, ORAL
Application: N018956 | Product #004
Applicant: GE HEALTHCARE
Approved: Dec 26, 1985 | RLD: Yes | RS: Yes | Type: RX